FAERS Safety Report 7982217-2 (Version None)
Quarter: 2011Q4

REPORT INFORMATION
  Report Type: 
  Country: None (occurrence: None)
  Receive Date: 20111215
  Receipt Date: 20111208
  Transmission Date: 20120403
  Serious: Yes (Other)
  Sender: FDA-Public Use
  Company Number: FR-AMGEN-FRASP2011002471

PATIENT
  Age: 55 Year
  Sex: Female

DRUGS (3)
  1. VOLTARENE                          /00372302/ [Concomitant]
     Indication: ANKYLOSING SPONDYLITIS
     Dosage: 50 MG, 1X/DAY
     Route: 048
     Dates: start: 20080801
  2. ENBREL [Suspect]
     Dosage: 50 MG, EVERY 10 DAYS
     Dates: start: 20100601
  3. ENBREL [Suspect]
     Indication: ANKYLOSING SPONDYLITIS
     Dosage: 50 MG, WEEKLY
     Dates: start: 20080301

REACTIONS (3)
  - ANKLE FRACTURE [None]
  - FRACTURE DELAYED UNION [None]
  - ROAD TRAFFIC ACCIDENT [None]
